FAERS Safety Report 8932582 (Version 2)
Quarter: 2012Q4

REPORT INFORMATION
  Report Type: 
  Country: JP (occurrence: JP)
  Receive Date: 20121128
  Receipt Date: 20121212
  Transmission Date: 20130627
  Serious: Yes (Other)
  Sender: FDA-Public Use
  Company Number: JP-PFIZER INC-2012293239

PATIENT
  Sex: Female

DRUGS (1)
  1. ZITHROMAC [Suspect]
     Indication: SEXUALLY TRANSMITTED DISEASE
     Dosage: 1000 mg, single
     Route: 048
     Dates: start: 20121120, end: 20121120

REACTIONS (1)
  - Melaena [Unknown]
